FAERS Safety Report 15192326 (Version 2)
Quarter: 2018Q4

REPORT INFORMATION
  Report Type: Spontaneous
  Country: US (occurrence: US)
  Receive Date: 20180724
  Receipt Date: 20181027
  Transmission Date: 20190204
  Serious: Yes (Hospitalization)
  Sender: FDA-Public Use
  Company Number: US-009507513-1807USA007933

PATIENT
  Age: 28 Year
  Sex: Male

DRUGS (2)
  1. COZAAR [Suspect]
     Active Substance: LOSARTAN POTASSIUM
     Indication: THROMBOPHLEBITIS SUPERFICIAL
  2. COZAAR [Suspect]
     Active Substance: LOSARTAN POTASSIUM
     Indication: HYPERTENSION
     Dosage: 1 TABLET, QD
     Route: 048
     Dates: start: 201708

REACTIONS (9)
  - Disorientation [Not Recovered/Not Resolved]
  - Aspartate aminotransferase increased [Unknown]
  - Lymph node pain [Not Recovered/Not Resolved]
  - Fatigue [Not Recovered/Not Resolved]
  - Alanine aminotransferase abnormal [Unknown]
  - Road traffic accident [Unknown]
  - Hepatitis C virus test positive [Not Recovered/Not Resolved]
  - Product use in unapproved indication [Unknown]
  - Lymphadenopathy [Not Recovered/Not Resolved]

NARRATIVE: CASE EVENT DATE: 201708
